FAERS Safety Report 21986834 (Version 4)
Quarter: 2023Q1

REPORT INFORMATION
  Report Type: Spontaneous
  Country: MX (occurrence: MX)
  Receive Date: 20230213
  Receipt Date: 20230328
  Transmission Date: 20230418
  Serious: Yes (Life-Threatening, Other)
  Sender: FDA-Public Use
  Company Number: MX-009507513-2302MEX003975

PATIENT
  Age: 37 Year
  Sex: Male
  Weight: 64.5 kg

DRUGS (3)
  1. KEYTRUDA [Suspect]
     Active Substance: PEMBROLIZUMAB
     Indication: Colorectal cancer
     Dosage: 200 MG EVERY 21 DAYS
     Route: 042
     Dates: start: 20220719, end: 20221213
  2. KEYTRUDA [Suspect]
     Active Substance: PEMBROLIZUMAB
     Indication: Rectal cancer
  3. KEYTRUDA [Suspect]
     Active Substance: PEMBROLIZUMAB
     Indication: Colorectal cancer

REACTIONS (2)
  - Immune-mediated hepatitis [Recovering/Resolving]
  - Enterovesical fistula [Unknown]

NARRATIVE: CASE EVENT DATE: 20221213
